FAERS Safety Report 5510229-7 (Version None)
Quarter: 2007Q4

REPORT INFORMATION
  Report Type: 
  Country: None (occurrence: None)
  Receive Date: 20071108
  Receipt Date: 20071101
  Transmission Date: 20080405
  Serious: Yes (Hospitalization, Other)
  Sender: FDA-Public Use
  Company Number: US-ROCHE-467348

PATIENT
  Age: 16 Year
  Sex: Male
  Weight: 54.9 kg

DRUGS (3)
  1. ACCUTANE [Suspect]
     Indication: ACNE
     Route: 048
     Dates: start: 20020312, end: 20020801
  2. ACCUTANE [Suspect]
     Route: 048
     Dates: start: 20020901, end: 20021201
  3. ACCUTANE [Suspect]
     Route: 048
     Dates: end: 20030110

REACTIONS (32)
  - ANAEMIA [None]
  - ANXIETY [None]
  - APHTHOUS STOMATITIS [None]
  - BLOOD TRIGLYCERIDES INCREASED [None]
  - COLITIS [None]
  - COLITIS ISCHAEMIC [None]
  - COLITIS ULCERATIVE [None]
  - CROHN'S DISEASE [None]
  - DEPRESSION [None]
  - DUODENAL ULCER [None]
  - DUODENITIS [None]
  - GASTRIC ULCER [None]
  - HIGH DENSITY LIPOPROTEIN DECREASED [None]
  - ILL-DEFINED DISORDER [None]
  - INFLAMMATORY BOWEL DISEASE [None]
  - INTERVERTEBRAL DISC DEGENERATION [None]
  - INTERVERTEBRAL DISC PROTRUSION [None]
  - INTESTINAL OBSTRUCTION [None]
  - NERVE COMPRESSION [None]
  - ODYNOPHAGIA [None]
  - OESOPHAGEAL CANDIDIASIS [None]
  - OESOPHAGEAL ULCER [None]
  - OESOPHAGITIS [None]
  - PELVIC PAIN [None]
  - PROCTALGIA [None]
  - PROCTITIS ULCERATIVE [None]
  - PSEUDOPOLYP [None]
  - SINUSITIS [None]
  - TOTAL CHOLESTEROL/HDL RATIO INCREASED [None]
  - VIRAL INFECTION [None]
  - VOLVULUS [None]
  - WEIGHT DECREASED [None]
